FAERS Safety Report 5542408-7 (Version None)
Quarter: 2007Q4

REPORT INFORMATION
  Report Type: 
  Country: None (occurrence: None)
  Receive Date: 20071210
  Receipt Date: 20071101
  Transmission Date: 20080405
  Serious: Yes (Life-Threatening, Hospitalization, Disabling, Other)
  Sender: FDA-Public Use
  Company Number: PHFR2006GB01932

PATIENT
  Age: 72 Year
  Sex: Male

DRUGS (22)
  1. ARIPIPRAZOLE [Suspect]
     Dosage: 5 MG
     Route: 065
  2. CLONAZEPAM [Concomitant]
     Indication: RESTLESS LEGS SYNDROME
     Dosage: 0.5 MG
     Route: 048
     Dates: start: 20060614
  3. PARACETAMOL [Concomitant]
     Indication: PAIN
     Dosage: 500 MG, BID
     Route: 048
  4. ESOMEPRAZOLE [Concomitant]
     Indication: GASTRITIS
     Dosage: 40 MG, QD
     Route: 048
     Dates: start: 20060530
  5. ESOMEPRAZOLE [Concomitant]
     Dosage: 40 MG, QD
     Route: 048
     Dates: start: 20020101
  6. DOMPERIDONE [Concomitant]
     Indication: GASTRITIS
     Dosage: 10 MG, BID
     Route: 048
     Dates: start: 20060614
  7. ASPIRIN [Concomitant]
     Indication: CARDIAC DISORDER
     Dosage: 75 MG
     Route: 048
     Dates: start: 20060530
  8. ATORVASTATIN [Concomitant]
     Dosage: 40 MG
     Route: 048
  9. FUROSEMIDE [Concomitant]
     Indication: BLOOD PRESSURE
     Dosage: 80 MG
     Route: 048
     Dates: start: 20060530
  10. FUROSEMIDE [Concomitant]
     Dosage: 20 MG, QD
     Route: 048
  11. GLICLAZIDE [Concomitant]
     Indication: DIABETES MELLITUS
     Dosage: 80 MG
     Route: 048
  12. GLICLAZIDE [Concomitant]
     Dosage: 40 MG, QD
     Route: 048
  13. PERINDOPRIL [Concomitant]
     Indication: BLOOD PRESSURE
     Route: 048
  14. ISOSORBIDE MONONITRATE [Concomitant]
     Indication: ANGINA PECTORIS
     Dosage: 60 MG, QD
     Route: 048
     Dates: start: 19990101
  15. ESCITALOPRAM [Concomitant]
     Indication: DEPRESSION
     Dosage: 10MG DAILY
     Route: 048
     Dates: start: 20050101
  16. ESCITALOPRAM [Concomitant]
     Dosage: 15 MG, QD
     Route: 048
  17. ALBUTEROL [Concomitant]
     Indication: ASTHMA
     Dosage: 2 DF, QID
     Dates: start: 19990101
  18. CLOZARIL [Suspect]
     Indication: SCHIZOPHRENIA
     Dosage: 300MG DAILY
     Route: 048
     Dates: start: 19990409
  19. CLOZARIL [Suspect]
     Dosage: 75 MG, BID
     Route: 048
  20. CLOZARIL [Suspect]
     Dosage: 125 MG, QD
     Route: 048
  21. SERETIDE [Concomitant]
     Indication: ASTHMA
     Dosage: 250 MG, BID
     Route: 048
  22. SERETIDE [Concomitant]
     Dosage: 250 MG, BID
     Route: 048

REACTIONS (37)
  - ANGINA PECTORIS [None]
  - ANOREXIA [None]
  - ASPIRATION [None]
  - ASTHMA [None]
  - BACK PAIN [None]
  - CHEST PAIN [None]
  - CHEST X-RAY ABNORMAL [None]
  - CHRONIC OBSTRUCTIVE PULMONARY DISEASE [None]
  - COUGH [None]
  - CREPITATIONS [None]
  - DEPRESSED LEVEL OF CONSCIOUSNESS [None]
  - DIABETES MELLITUS [None]
  - DIZZINESS [None]
  - FATIGUE [None]
  - GAIT DISTURBANCE [None]
  - GASTRITIS [None]
  - HAEMOGLOBIN DECREASED [None]
  - ILEUS PARALYTIC [None]
  - LOWER RESPIRATORY TRACT INFECTION [None]
  - MALAISE [None]
  - MENTAL IMPAIRMENT [None]
  - MYELODYSPLASTIC SYNDROME [None]
  - NEUTROPHIL COUNT INCREASED [None]
  - OESOPHAGITIS [None]
  - PALLOR [None]
  - PLATELET COUNT INCREASED [None]
  - PNEUMONIA [None]
  - POLYP [None]
  - PYREXIA [None]
  - RED BLOOD CELL COUNT DECREASED [None]
  - RENAL FAILURE [None]
  - RESTLESS LEGS SYNDROME [None]
  - SEDATION [None]
  - SEPSIS [None]
  - SPUTUM DISCOLOURED [None]
  - TARDIVE DYSKINESIA [None]
  - WHITE BLOOD CELL COUNT INCREASED [None]
